FAERS Safety Report 11309077 (Version 1)
Quarter: 2015Q3

REPORT INFORMATION
  Report Type: Spontaneous
  Country: AU (occurrence: AU)
  Receive Date: 20150724
  Receipt Date: 20150724
  Transmission Date: 20151125
  Serious: Yes (Hospitalization)
  Sender: FDA-Public Use
  Company Number: AU-PFIZER INC-2015215022

PATIENT
  Age: 69 Year
  Sex: Male

DRUGS (1)
  1. CAVERJECT [Suspect]
     Active Substance: ALPROSTADIL
     Indication: NERVE INJURY
     Dosage: 10-20MCG AS REQUIRED/NEEDED
     Dates: start: 201505

REACTIONS (4)
  - Painful ejaculation [Recovered/Resolved]
  - Painful erection [Recovered/Resolved]
  - Drug ineffective [Recovered/Resolved]
  - Penile pain [Not Recovered/Not Resolved]

NARRATIVE: CASE EVENT DATE: 2015
